FAERS Safety Report 8976028 (Version 1)
Quarter: 2012Q4

REPORT INFORMATION
  Report Type: 
  Country: DE (occurrence: DE)
  Receive Date: 20121219
  Receipt Date: 20121219
  Transmission Date: 20130627
  Serious: Yes (Hospitalization)
  Sender: FDA-Public Use
  Company Number: GXKR2012DE003673

PATIENT
  Age: 70 Year
  Sex: Female
  Weight: 65 kg

DRUGS (3)
  1. CETIRIZINE [Suspect]
     Dosage: 10 mg, UNK
     Route: 048
  2. ORAL ANTIDIABETICS [Concomitant]
     Indication: DIABETES MELLITUS
  3. CORTISONE [Concomitant]
     Indication: HYPERSENSITIVITY

REACTIONS (3)
  - Palmar-plantar erythrodysaesthesia syndrome [Recovered/Resolved]
  - Swelling face [Recovered/Resolved]
  - Pruritus [Recovered/Resolved]
